FAERS Safety Report 4819094-4 (Version None)
Quarter: 2005Q4

REPORT INFORMATION
  Report Type: 
  Country: None (occurrence: None)
  Receive Date: 20051103
  Receipt Date: 20051024
  Transmission Date: 20060501
  Serious: Yes (Hospitalization)
  Sender: FDA-Public Use
  Company Number: 2005CG01767

PATIENT
  Age: 76 Year
  Sex: Male

DRUGS (2)
  1. XYLOCAINE [Suspect]
     Indication: ANALGESIC EFFECT
     Route: 042
     Dates: start: 20051022, end: 20051023
  2. XYLOCAINE [Suspect]
     Route: 042
     Dates: start: 20051023, end: 20051024

REACTIONS (3)
  - OFF LABEL USE [None]
  - POSTICTAL STATE [None]
  - PRESCRIBED OVERDOSE [None]
